FAERS Safety Report 5099646-X (Version None)
Quarter: 2006Q3

REPORT INFORMATION
  Report Type: 
  Country: None (occurrence: None)
  Receive Date: 20060906
  Receipt Date: 20060821
  Transmission Date: 20061208
  Serious: Yes (Hospitalization, Other)
  Sender: FDA-Public Use
  Company Number: 2006101769

PATIENT
  Sex: Female

DRUGS (1)
  1. FLUCONAZOLE [Suspect]
     Indication: CANDIDIASIS
     Dosage: (150 MG,) ORAL
     Route: 048
     Dates: start: 20060515, end: 20060515

REACTIONS (1)
  - DRUG HYPERSENSITIVITY [None]
